FAERS Safety Report 4724212-2 (Version None)
Quarter: 2005Q3

REPORT INFORMATION
  Report Type: 
  Country: None (occurrence: None)
  Receive Date: 20050726
  Receipt Date: 20050712
  Transmission Date: 20060218
  Serious: Yes (Other)
  Sender: FDA-Public Use
  Company Number: PHEH2005US07784

PATIENT
  Age: 61 Year
  Sex: Female

DRUGS (4)
  1. VOLTAREN-XR [Suspect]
     Indication: FIBROMYALGIA
     Dosage: 100 MG, BID
     Route: 048
     Dates: start: 20050501, end: 20050615
  2. MICRONASE [Interacting]
     Indication: DIABETES MELLITUS
     Dosage: UNK, BID
     Route: 048
  3. AVANDIA [Concomitant]
     Indication: DIABETES MELLITUS
     Dosage: UNK, QD
  4. TAGAMET [Concomitant]
     Indication: ERUCTATION

REACTIONS (6)
  - ABDOMINAL PAIN UPPER [None]
  - BLOOD GLUCOSE DECREASED [None]
  - MUSCLE SPASMS [None]
  - NAUSEA [None]
  - PHARMACEUTICAL PRODUCT COMPLAINT [None]
  - STOMACH DISCOMFORT [None]
